FAERS Safety Report 6525519-9 (Version None)
Quarter: 2010Q1

REPORT INFORMATION
  Report Type: 
  Country: None (occurrence: None)
  Receive Date: 20100104
  Receipt Date: 20091223
  Transmission Date: 20100710
  Serious: Yes (Other)
  Sender: FDA-Public Use
  Company Number: US-ASTRAZENECA-2009SE33327

PATIENT
  Age: 64 Year
  Sex: Female
  Weight: 74.8 kg

DRUGS (9)
  1. SEROQUEL [Suspect]
     Indication: BIPOLAR DISORDER
     Route: 048
     Dates: start: 20091101
  2. SEROQUEL [Suspect]
     Route: 048
     Dates: start: 20040101
  3. SEROQUEL [Suspect]
     Route: 048
  4. PREMARIN [Concomitant]
     Indication: HORMONE REPLACEMENT THERAPY
  5. BABY ASPIRIN [Concomitant]
     Indication: CARDIAC DISORDER
  6. METOPROLOL TARTRATE [Concomitant]
     Indication: HYPERTENSION
  7. FAMOTIDINE [Concomitant]
     Indication: GASTROOESOPHAGEAL REFLUX DISEASE
  8. OMEPRAZOLE [Concomitant]
     Indication: GASTROOESOPHAGEAL REFLUX DISEASE
  9. KLONOPIN [Concomitant]
     Indication: ANXIETY

REACTIONS (10)
  - ABDOMINAL PAIN [None]
  - AGITATION [None]
  - BRUXISM [None]
  - CATARACT [None]
  - CHOLECYSTECTOMY [None]
  - COLON OPERATION [None]
  - HERNIA REPAIR [None]
  - INCREASED APPETITE [None]
  - MYALGIA [None]
  - WEIGHT INCREASED [None]
